FAERS Safety Report 21924705 (Version 2)
Quarter: 2023Q1

REPORT INFORMATION
  Report Type: Spontaneous
  Country: US (occurrence: US)
  Receive Date: 20230130
  Receipt Date: 20230201
  Transmission Date: 20230418
  Serious: Yes (Other)
  Sender: FDA-Public Use
  Company Number: US-AMGEN-USASP2022228426

PATIENT
  Sex: Male

DRUGS (1)
  1. OTEZLA [Suspect]
     Active Substance: APREMILAST
     Indication: Psoriatic arthropathy
     Dosage: 30 MILLIGRAM, BID
     Route: 048
     Dates: start: 20220929

REACTIONS (5)
  - Psoriatic arthropathy [Unknown]
  - Therapy non-responder [Unknown]
  - Diarrhoea [Unknown]
  - Infection [Unknown]
  - Product dose omission issue [Unknown]
